FAERS Safety Report 4665598-7 (Version None)
Quarter: 2005Q2

REPORT INFORMATION
  Report Type: 
  Country: None (occurrence: None)
  Receive Date: 20050519
  Receipt Date: 20050506
  Transmission Date: 20051028
  Serious: Yes (Other)
  Sender: FDA-Public Use
  Company Number: US-JNJFOC-20050206194

PATIENT
  Sex: Female
  Weight: 58.97 kg

DRUGS (3)
  1. TOPAMAX [Suspect]
     Dosage: EXPOSURE TIME IN GESTATIONAL WEEKS: APPROXIMATELY 4 WEEKS
     Route: 049
  2. TOPAMAX [Suspect]
     Indication: EPILEPSY
     Route: 049
  3. BIRTH CONTROL MEDICATION [Concomitant]

REACTIONS (2)
  - ABORTION SPONTANEOUS [None]
  - DRUG EXPOSURE DURING PREGNANCY [None]
